FAERS Safety Report 11400915 (Version 1)
Quarter: 2015Q3

REPORT INFORMATION
  Report Type: Spontaneous
  Country: US (occurrence: US)
  Receive Date: 20150820
  Receipt Date: 20150820
  Transmission Date: 20151125
  Serious: No
  Sender: FDA-Public Use
  Company Number: US-MYLANLABS-2014S1016644

PATIENT
  Age: 66 Year
  Sex: Female
  Weight: 95.71 kg

DRUGS (2)
  1. THYROID GLAND [Concomitant]
     Dosage: UNK UNK,AM
  2. LIOTHYRONINE SODIUM. [Suspect]
     Active Substance: LIOTHYRONINE SODIUM
     Indication: THYROID DISORDER
     Dosage: 2.5 ?G,QD
     Route: 048
     Dates: start: 20140706

REACTIONS (2)
  - Reaction to drug excipients [Recovering/Resolving]
  - Headache [Recovering/Resolving]

NARRATIVE: CASE EVENT DATE: 20140706
